FAERS Safety Report 12990000 (Version 1)
Quarter: 2016Q4

REPORT INFORMATION
  Report Type: Report from Study
  Country: GR (occurrence: GR)
  Receive Date: 20161201
  Receipt Date: 20161201
  Transmission Date: 20170207
  Serious: Yes (Other)
  Sender: FDA-Public Use
  Company Number: PHHY2016GR161882

PATIENT
  Age: 53 Year
  Sex: Male

DRUGS (3)
  1. PAZOPANIB [Suspect]
     Active Substance: PAZOPANIB
     Dosage: 600 MG, UNK
     Route: 065
  2. PAZOPANIB [Suspect]
     Active Substance: PAZOPANIB
     Dosage: 400 MG, UNK
     Route: 065
     Dates: start: 201508
  3. PAZOPANIB [Suspect]
     Active Substance: PAZOPANIB
     Indication: RENAL CELL CARCINOMA
     Dosage: 800 MG, UNK
     Route: 065
     Dates: start: 201505

REACTIONS (10)
  - Diarrhoea [Unknown]
  - Alanine aminotransferase increased [Recovering/Resolving]
  - Decreased appetite [Unknown]
  - Renal mass [Unknown]
  - Malaise [Unknown]
  - Metastases to lymph nodes [Unknown]
  - Pulmonary mass [Unknown]
  - Nodule [Unknown]
  - Lymphadenitis [Unknown]
  - Liver function test abnormal [Unknown]
